FAERS Safety Report 24979710 (Version 1)
Quarter: 2025Q1

REPORT INFORMATION
  Report Type: Report from Study
  Country: US (occurrence: US)
  Receive Date: 20250218
  Receipt Date: 20250218
  Transmission Date: 20250408
  Serious: Yes (Hospitalization)
  Sender: ABBVIE
  Company Number: US-ABBVIE-6137125

PATIENT
  Age: 56 Year
  Sex: Male
  Weight: 140 kg

DRUGS (1)
  1. HUMIRA [Suspect]
     Active Substance: ADALIMUMAB
     Indication: Colitis ulcerative
     Route: 058
     Dates: start: 20200104, end: 202107

REACTIONS (5)
  - Haematochezia [Recovered/Resolved]
  - Colitis ulcerative [Recovered/Resolved]
  - Arthritis infective [Recovered/Resolved]
  - Therapeutic product effect decreased [Unknown]
  - Colitis ulcerative [Recovered/Resolved]

NARRATIVE: CASE EVENT DATE: 20240901
